FAERS Safety Report 10428166 (Version 1)
Quarter: 2014Q3

REPORT INFORMATION
  Report Type: Spontaneous
  Country: US (occurrence: None)
  Receive Date: 20140829
  Receipt Date: 20140829
  Transmission Date: 20150326
  Serious: Yes (Other)
  Sender: FDA-Public Use
  Company Number: VAL_03346_2014

PATIENT
  Age: 63 Year
  Sex: Male

DRUGS (1)
  1. METOPROLOL TARTRATE. [Suspect]
     Active Substance: METOPROLOL TARTRATE
     Indication: HYPERTENSION
     Dosage: DF
     Dates: start: 2012

REACTIONS (9)
  - Dermatitis psoriasiform [None]
  - Product substitution issue [None]
  - Pruritus [None]
  - Skin exfoliation [None]
  - Skin reaction [None]
  - Nail ridging [None]
  - Erythema [None]
  - Onychoclasis [None]
  - Nail discolouration [None]
